FAERS Safety Report 4518413-6 (Version None)
Quarter: 2004Q4

REPORT INFORMATION
  Report Type: 
  Country: None (occurrence: None)
  Receive Date: 20041202
  Receipt Date: 20041119
  Transmission Date: 20050328
  Serious: Yes (Hospitalization, Other)
  Sender: FDA-Public Use
  Company Number: HQWYE622422NOV04

PATIENT
  Age: 29 Year
  Sex: Male

DRUGS (2)
  1. ADVIL [Suspect]
     Route: 048
     Dates: start: 20041010
  2. ACETAMINOPHEN [Suspect]
     Dates: start: 20041010

REACTIONS (4)
  - AGRANULOCYTOSIS [None]
  - ANAEMIA [None]
  - PLASMODIUM FALCIPARUM INFECTION [None]
  - THROMBOCYTOPENIA [None]
